FAERS Safety Report 16638857 (Version 1)
Quarter: 2019Q3

REPORT INFORMATION
  Report Type: Report from Study
  Country: CA (occurrence: CA)
  Receive Date: 20190726
  Receipt Date: 20190726
  Transmission Date: 20191004
  Serious: Yes (Hospitalization, Other)
  Sender: FDA-Public Use
  Company Number: CA-PFIZER INC-2019319759

PATIENT
  Age: 77 Year
  Sex: Female

DRUGS (3)
  1. METHOTREXATE SODIUM. [Suspect]
     Active Substance: METHOTREXATE SODIUM
     Indication: CROHN^S DISEASE
     Dosage: UNK
     Route: 065
  2. HUMIRA [Suspect]
     Active Substance: ADALIMUMAB
     Indication: CROHN^S DISEASE
     Dosage: UNK
     Route: 058
  3. RISEDRONATE SODIUM. [Suspect]
     Active Substance: RISEDRONATE SODIUM
     Dosage: UNK
     Route: 065

REACTIONS (9)
  - Leukopenia [Unknown]
  - Oesophageal ulcer [Unknown]
  - Urinary tract infection [Unknown]
  - Dysuria [Unknown]
  - Thrombocytopenia [Unknown]
  - Chest pain [Unknown]
  - Oesophagitis [Unknown]
  - Neutrophilia [Unknown]
  - Odynophagia [Unknown]
